FAERS Safety Report 21599328 (Version 1)
Quarter: 2022Q4

REPORT INFORMATION
  Report Type: Spontaneous
  Country: US (occurrence: None)
  Receive Date: 20221114
  Receipt Date: 20221114
  Transmission Date: 20230113
  Serious: Yes (Hospitalization)
  Sender: FDA-Public Use
  Company Number: None

PATIENT
  Age: 76 Year
  Sex: Male
  Weight: 77.7 kg

DRUGS (2)
  1. TECARTUS [Suspect]
     Active Substance: BREXUCABTAGENE AUTOLEUCEL
  2. BENDAMUSTINE [Suspect]
     Active Substance: BENDAMUSTINE

REACTIONS (9)
  - Cytokine release syndrome [None]
  - Serum ferritin increased [None]
  - Somnolence [None]
  - Confusional state [None]
  - Encephalopathy [None]
  - Aphasia [None]
  - Neurotoxicity [None]
  - Asthenia [None]
  - Lethargy [None]

NARRATIVE: CASE EVENT DATE: 20221012
